FAERS Safety Report 24529304 (Version 1)
Quarter: 2024Q4

REPORT INFORMATION
  Report Type: Spontaneous
  Country: US (occurrence: None)
  Receive Date: 20241020
  Receipt Date: 20241020
  Transmission Date: 20250115
  Serious: Yes (Life-Threatening)
  Sender: Public
  Company Number: None

PATIENT
  Age: 39 Year
  Sex: Female
  Weight: 68.4 kg

DRUGS (5)
  1. ISOTRETINOIN [Suspect]
     Active Substance: ISOTRETINOIN
     Indication: Acne
     Dates: start: 20240220, end: 20240930
  2. Birth control pill [Concomitant]
  3. LEVOTHYROXINE [Concomitant]
     Active Substance: LEVOTHYROXINE
  4. Women^s multi-vitamin [Concomitant]
  5. PROBIOTICS NOS [Concomitant]
     Active Substance: PROBIOTICS NOS

REACTIONS (15)
  - Suicidal ideation [None]
  - Depression [None]
  - Irritability [None]
  - Mood swings [None]
  - Anger [None]
  - Restlessness [None]
  - Dry skin [None]
  - Nasal dryness [None]
  - Dry eye [None]
  - Arthralgia [None]
  - Memory impairment [None]
  - Chapped lips [None]
  - Affect lability [None]
  - Impulsive behaviour [None]
  - Morbid thoughts [None]

NARRATIVE: CASE EVENT DATE: 20240930
